FAERS Safety Report 12226283 (Version 1)
Quarter: 2016Q1

REPORT INFORMATION
  Report Type: Spontaneous
  Country: US (occurrence: US)
  Receive Date: 20160331
  Receipt Date: 20160331
  Transmission Date: 20160526
  Serious: Yes (Other)
  Sender: FDA-Public Use
  Company Number: US-MDT-ADR-2016-00600

PATIENT
  Age: 33 Year
  Sex: Male

DRUGS (1)
  1. BACLOFEN, UNKNOWN [Suspect]
     Active Substance: BACLOFEN
     Route: 037

REACTIONS (5)
  - Insomnia [Unknown]
  - Hallucination [Unknown]
  - Abnormal behaviour [Unknown]
  - Confusional state [Unknown]
  - Agitation [Unknown]
